FAERS Safety Report 8059504-5 (Version None)
Quarter: 2012Q1

REPORT INFORMATION
  Report Type: 
  Country: None (occurrence: None)
  Receive Date: 20120120
  Receipt Date: 20120112
  Transmission Date: 20120608
  Serious: Yes (Death, Life-Threatening, Hospitalization)
  Sender: FDA-Public Use
  Company Number: CZ-ROCHE-1030061

PATIENT
  Sex: Female

DRUGS (15)
  1. URSOSAN [Concomitant]
     Route: 048
     Dates: start: 20111221, end: 20111222
  2. TRANSMETIL [Concomitant]
     Dosage: 11.12. ONE DOSE CANCELLED
     Route: 042
     Dates: start: 20111206, end: 20111218
  3. OMEPRAZOLE [Concomitant]
     Dosage: 1 DAY QUAMATEL
     Route: 042
     Dates: start: 20111020, end: 20111211
  4. BERODUAL [Concomitant]
     Dosage: INHALATION TOGETHER WITH MUCOSOLVAN, ENDOTRACHEOPULMONARY INSTILLATION, SOLUTION
     Dates: start: 20111216, end: 20111222
  5. CYCLOPHOSPHAMIDE [Concomitant]
     Indication: DIFFUSE LARGE B-CELL LYMPHOMA
     Route: 042
     Dates: start: 20111129, end: 20111129
  6. DOXORUBICIN HCL [Concomitant]
     Indication: DIFFUSE LARGE B-CELL LYMPHOMA
     Route: 042
     Dates: start: 20111129, end: 20111129
  7. NEUPOGEN [Concomitant]
     Route: 058
     Dates: start: 20111201, end: 20111222
  8. VINCRISTINE [Concomitant]
     Indication: DIFFUSE LARGE B-CELL LYMPHOMA
     Route: 042
     Dates: start: 20111129, end: 20111129
  9. MABTHERA [Suspect]
     Indication: DIFFUSE LARGE B-CELL LYMPHOMA
     Route: 042
     Dates: start: 20111129, end: 20111129
  10. MUCOSOLVAN [Concomitant]
     Dosage: INHALATION TOGETHER WITH BERODUAL, ENDOTRACHEOPULMONARY INSTILLATION, SOLUTION
     Dates: start: 20111216, end: 20111222
  11. PREDNISONE [Concomitant]
     Indication: DIFFUSE LARGE B-CELL LYMPHOMA
     Route: 048
     Dates: start: 20111129, end: 20111203
  12. MABTHERA [Suspect]
     Route: 042
     Dates: start: 20111129, end: 20111129
  13. OXICONAZOLE NITRATE [Concomitant]
     Dosage: ON SOLE OF FOOT
     Route: 061
     Dates: start: 20111209, end: 20111217
  14. TRANSMETIL [Concomitant]
     Route: 042
     Dates: start: 20111221, end: 20111222
  15. BATRAFEN [Concomitant]
     Dosage: ON THE NAILS
     Route: 061
     Dates: start: 20111209, end: 20111217

REACTIONS (5)
  - ACUTE RESPIRATORY FAILURE [None]
  - FEBRILE NEUTROPENIA [None]
  - SEPTIC SHOCK [None]
  - MULTI-ORGAN FAILURE [None]
  - MUCOSAL INFLAMMATION [None]
